FAERS Safety Report 25060417 (Version 1)
Quarter: 2025Q1

REPORT INFORMATION
  Report Type: Spontaneous
  Country: BD (occurrence: US)
  Receive Date: 20250310
  Receipt Date: 20250310
  Transmission Date: 20250409
  Serious: Yes (Other)
  Sender: GALPHARM INTERNATIONAL
  Company Number: BD-PERRIGO-25US003003

PATIENT
  Age: 65 Year
  Sex: Male

DRUGS (1)
  1. MINOXIDIL [Suspect]
     Active Substance: MINOXIDIL
     Indication: Product used for unknown indication
     Route: 061

REACTIONS (1)
  - Pericardial effusion [Recovered/Resolved]
